FAERS Safety Report 4482367-1 (Version None)
Quarter: 2004Q4

REPORT INFORMATION
  Report Type: 
  Country: None (occurrence: None)
  Receive Date: 20041022
  Receipt Date: 20030818
  Transmission Date: 20050328
  Serious: No
  Sender: FDA-Public Use
  Company Number: US-BRISTOL-MYERS SQUIBB COMPANY-12358677

PATIENT
  Age: 54 Year
  Sex: Male
  Weight: 82 kg

DRUGS (6)
  1. BUSPAR [Suspect]
     Indication: GENERALISED ANXIETY DISORDER
     Dosage: AT 12 NOON AND 12 MIDNIGHT. STOPPED FOR SHORT PERIOD OF TIME + THEN RE-STARTS.
     Route: 048
     Dates: start: 20030501
  2. BUSPAR [Suspect]
     Indication: DEPRESSION
     Dosage: AT 12 NOON AND 12 MIDNIGHT. STOPPED FOR SHORT PERIOD OF TIME + THEN RE-STARTS.
     Route: 048
     Dates: start: 20030501
  3. KLONOPIN [Suspect]
     Indication: DEPRESSION
  4. ZANTAC [Concomitant]
  5. ZOLOFT [Concomitant]
  6. VALIUM [Concomitant]

REACTIONS (3)
  - NEUROPATHY [None]
  - PARAESTHESIA [None]
  - VISION BLURRED [None]
